FAERS Safety Report 11326276 (Version 1)
Quarter: 2015Q3

REPORT INFORMATION
  Report Type: Spontaneous
  Country: DE (occurrence: DE)
  Receive Date: 20150731
  Receipt Date: 20150731
  Transmission Date: 20151125
  Serious: Yes (Death, Life-Threatening)
  Sender: FDA-Public Use
  Company Number: DE-BAYER-2015-387383

PATIENT
  Age: 93 Year
  Sex: Female

DRUGS (11)
  1. HALDOL [Concomitant]
     Active Substance: HALOPERIDOL
     Dosage: 1 MG, QD
     Dates: start: 20110128, end: 20110131
  2. TOREM [Concomitant]
     Active Substance: TORSEMIDE
     Dosage: 10 MG, QD
     Route: 048
     Dates: start: 20110128, end: 20110202
  3. DIOVAN [Concomitant]
     Active Substance: VALSARTAN
     Dosage: 160 MG, QD
     Route: 048
     Dates: start: 20110128, end: 20110202
  4. CALCIUM CARBONATE. [Concomitant]
     Active Substance: CALCIUM CARBONATE
     Dosage: 2 DF, QD
     Route: 048
     Dates: start: 20110128, end: 20110202
  5. ASPIRIN. [Concomitant]
     Active Substance: ASPIRIN
     Dosage: 100 MG, QD
     Route: 048
     Dates: start: 20110128, end: 20110202
  6. ACC [Concomitant]
     Active Substance: ACETYLCYSTEINE
     Dosage: 800 MG, QD
     Route: 048
     Dates: start: 20110128, end: 20110202
  7. AVALOX [Suspect]
     Active Substance: MOXIFLOXACIN HYDROCHLORIDE
     Dosage: 400 MG, QD
     Route: 048
     Dates: start: 20110130, end: 20110202
  8. DOXYCYCLIN [Concomitant]
     Active Substance: DOXYCYCLINE
     Dosage: 100 MG, QD
     Route: 048
     Dates: start: 20110128, end: 20110129
  9. EUTHYROX [Concomitant]
     Active Substance: LEVOTHYROXINE SODIUM
     Dosage: 25 MG, QD
     Route: 048
     Dates: start: 20110128, end: 20110202
  10. VIGANTOLETTEN [Concomitant]
     Active Substance: CHOLECALCIFEROL
     Dosage: 1000 MG, QD
     Route: 048
     Dates: start: 20110128, end: 20110202
  11. KALINOR [Concomitant]
     Active Substance: POTASSIUM CITRATE
     Dosage: 2 DF, QD
     Dates: start: 20110128, end: 20110202

REACTIONS (1)
  - Sudden death [Fatal]

NARRATIVE: CASE EVENT DATE: 20110202
